FAERS Safety Report 9639529 (Version 1)
Quarter: 2013Q4

REPORT INFORMATION
  Report Type: Report from Study
  Country: US (occurrence: US)
  Receive Date: 20131023
  Receipt Date: 20131023
  Transmission Date: 20140711
  Serious: Yes (Life-Threatening)
  Sender: FDA-Public Use
  Company Number: US-009507513-1310USA010229

PATIENT
  Sex: 0

DRUGS (2)
  1. TEMODAR [Suspect]
     Indication: GLIOBLASTOMA
     Dosage: 75 MG/M2, QD (UNTIL COMPLETION OF RADIATION TREATMENT WITH A MAXIMUM OF 49 DOSES)
  2. TEMODAR [Suspect]
     Dosage: AT A STARTING DOSE OF 150 MG/M2 FOR 5 CONSECUTIVE DAYS OF A 28-DAY CYCLE

REACTIONS (1)
  - Thrombocytopenia [Unknown]
